FAERS Safety Report 7234807-2 (Version None)
Quarter: 2011Q1

REPORT INFORMATION
  Report Type: 
  Country: None (occurrence: None)
  Receive Date: 20110120
  Receipt Date: 20110106
  Transmission Date: 20110831
  Serious: Yes (Hospitalization)
  Sender: FDA-Public Use
  Company Number: DK-RANBAXY-2011US-40919

PATIENT
  Age: 4 Year
  Sex: Male
  Weight: 20 kg

DRUGS (1)
  1. CETIRIZINE HCL [Suspect]
     Indication: PRODUCT USED FOR UNKNOWN INDICATION
     Dosage: 60 MG, UNK
     Route: 048

REACTIONS (4)
  - SOMNOLENCE [None]
  - ACCIDENTAL OVERDOSE [None]
  - MEDICATION ERROR [None]
  - LETHARGY [None]
